FAERS Safety Report 8616702-7 (Version None)
Quarter: 2012Q3

REPORT INFORMATION
  Report Type: 
  Country: None (occurrence: None)
  Receive Date: 20120823
  Receipt Date: 20120821
  Transmission Date: 20120928
  Serious: Yes (Hospitalization, Other)
  Sender: FDA-Public Use
  Company Number: BR-ROCHE-1000854

PATIENT
  Sex: Female
  Weight: 60 kg

DRUGS (11)
  1. CAL D [Concomitant]
  2. ARAVA [Concomitant]
  3. FORTEO [Concomitant]
  4. FOLIC ACID [Concomitant]
  5. MABTHERA [Suspect]
     Indication: RHEUMATOID ARTHRITIS
     Dates: start: 20100301, end: 20120102
  6. ACTONEL [Concomitant]
  7. METHOTREXATE [Concomitant]
  8. OLMESARTAN MEDOXOMIL [Concomitant]
  9. RABEPRAZOLE SODIUM [Concomitant]
  10. RANITIDINE [Concomitant]
  11. ASCORBIC ACID [Concomitant]

REACTIONS (4)
  - BODY HEIGHT DECREASED [None]
  - CATARACT [None]
  - JOINT INJURY [None]
  - BODY HEIGHT INCREASED [None]
